FAERS Safety Report 20325810 (Version 2)
Quarter: 2022Q2

REPORT INFORMATION
  Report Type: Report from Study
  Country: US (occurrence: US)
  Receive Date: 20220112
  Receipt Date: 20220422
  Transmission Date: 20220721
  Serious: Yes (Other)
  Sender: FDA-Public Use
  Company Number: US-KOREA IPSEN Pharma-2022-00476

PATIENT
  Age: 50 Year
  Sex: Male

DRUGS (2)
  1. SOMATULINE DEPOT [Suspect]
     Active Substance: LANREOTIDE ACETATE
     Indication: Carcinoid tumour
     Route: 058
  2. SOMATULINE DEPOT [Suspect]
     Active Substance: LANREOTIDE ACETATE
     Dosage: 120MG/ 0.5ML
     Route: 058
     Dates: start: 201801

REACTIONS (12)
  - Flushing [Unknown]
  - Thirst [Unknown]
  - Dry mouth [Unknown]
  - Blood glucose increased [Unknown]
  - Crohn^s disease [Recovering/Resolving]
  - Hepatic enzyme increased [Unknown]
  - Alpha-1 anti-trypsin decreased [Unknown]
  - Haematochezia [Recovering/Resolving]
  - Lower gastrointestinal haemorrhage [Recovered/Resolved]
  - Constipation [Recovering/Resolving]
  - Glycosylated haemoglobin increased [Recovering/Resolving]
  - Off label use [Unknown]
